FAERS Safety Report 20377329 (Version 1)
Quarter: 2022Q1

REPORT INFORMATION
  Report Type: Spontaneous
  Country: CA (occurrence: None)
  Receive Date: 20220126
  Receipt Date: 20220126
  Transmission Date: 20220423
  Serious: Yes (Death)
  Sender: FDA-Public Use
  Company Number: CA-ROCHE-3007954

PATIENT
  Age: 73 Year
  Sex: Male

DRUGS (9)
  1. BEVACIZUMAB [Suspect]
     Active Substance: BEVACIZUMAB
     Indication: Glioblastoma multiforme
     Route: 042
  2. DEXAMETHASONE [Concomitant]
     Active Substance: DEXAMETHASONE
  3. DUTASTERIDE [Concomitant]
     Active Substance: DUTASTERIDE
  4. LACOSAMIDE [Concomitant]
     Active Substance: LACOSAMIDE
  5. LORAZEPAM [Concomitant]
     Active Substance: LORAZEPAM
  6. RANITIDINE [Concomitant]
     Active Substance: RANITIDINE
  7. ROSUVASTATIN CALCIUM [Concomitant]
     Active Substance: ROSUVASTATIN CALCIUM
  8. TAMSULOSIN HYDROCHLORIDE [Concomitant]
     Active Substance: TAMSULOSIN HYDROCHLORIDE
  9. VALSARTAN [Concomitant]
     Active Substance: VALSARTAN

REACTIONS (1)
  - Death [Fatal]
